FAERS Safety Report 5691474-7 (Version None)
Quarter: 2008Q1

REPORT INFORMATION
  Report Type: 
  Country: None (occurrence: None)
  Receive Date: 20080331
  Receipt Date: 20080318
  Transmission Date: 20080703
  Serious: Yes (Other)
  Sender: FDA-Public Use
  Company Number: B0514118A

PATIENT
  Age: 16 Year
  Sex: Male

DRUGS (3)
  1. WELLBUTRIN SR [Suspect]
     Indication: DEPRESSION
     Dosage: 100 MG / TWICE PER DAY / ORAL
     Route: 048
  2. ROPIVACAINE HCL INJECTION (ROPIVACAINE HCL) [Suspect]
     Indication: LOCAL ANAESTHESIA
  3. ADRENALINE [Concomitant]

REACTIONS (3)
  - DRUG INTERACTION [None]
  - GRAND MAL CONVULSION [None]
  - MENTAL STATUS CHANGES [None]
